FAERS Safety Report 6070434-0 (Version None)
Quarter: 2009Q1

REPORT INFORMATION
  Report Type: 
  Country: None (occurrence: None)
  Receive Date: 20090209
  Receipt Date: 20090203
  Transmission Date: 20090719
  Serious: Yes (Death, Other)
  Sender: FDA-Public Use
  Company Number: PHHY2009BR03929

PATIENT
  Age: 54 Year
  Sex: Male

DRUGS (1)
  1. LEPONEX [Suspect]
     Indication: SCHIZOPHRENIA
     Dosage: 500 MG DAILY
     Dates: start: 20080101

REACTIONS (3)
  - INFECTION [None]
  - INJURY [None]
  - WHITE BLOOD CELL COUNT DECREASED [None]
